FAERS Safety Report 10385302 (Version 1)
Quarter: 2014Q3

REPORT INFORMATION
  Report Type: Spontaneous
  Country: US (occurrence: None)
  Receive Date: 20140813
  Receipt Date: 20140813
  Transmission Date: 20150326
  Serious: No
  Sender: FDA-Public Use
  Company Number: None

PATIENT
  Age: 61 Year
  Sex: Female
  Weight: 68.04 kg

DRUGS (1)
  1. NORTRIPTYLINE HCL [Suspect]
     Active Substance: NORTRIPTYLINE HYDROCHLORIDE
     Indication: INSOMNIA
     Dosage: 1 CAPSULE  ONCE DAILY TAKEN BY MOUTH
     Route: 048
     Dates: start: 20140807, end: 20140812

REACTIONS (2)
  - Product quality issue [None]
  - Insomnia [None]

NARRATIVE: CASE EVENT DATE: 20140812
